FAERS Safety Report 4324086-8 (Version None)
Quarter: 2004Q1

REPORT INFORMATION
  Report Type: 
  Country: None (occurrence: None)
  Receive Date: 20040326
  Receipt Date: 20031217
  Transmission Date: 20041129
  Serious: No
  Sender: FDA-Public Use
  Company Number: US-GLAXOSMITHKLINE-A0443490A

PATIENT
  Age: 63 Year
  Sex: Female

DRUGS (10)
  1. ADVAIR DISKUS 100/50 [Suspect]
     Dosage: 1PUFF TWICE PER DAY
     Route: 055
     Dates: start: 20031114
  2. PREVACID [Concomitant]
  3. SYNTHROID [Concomitant]
  4. CLARINEX [Concomitant]
  5. PREMARIN [Concomitant]
  6. HYZAAR [Concomitant]
  7. BUMETANIDE [Concomitant]
  8. ASPIRIN [Concomitant]
  9. TIMOLOL MALEATE [Concomitant]
  10. XALATAN [Concomitant]

REACTIONS (1)
  - RASH PRURITIC [None]
